FAERS Safety Report 19137844 (Version 4)
Quarter: 2021Q2

REPORT INFORMATION
  Report Type: Spontaneous
  Country: US (occurrence: US)
  Receive Date: 20210414
  Receipt Date: 20210518
  Transmission Date: 20210717
  Serious: Yes (Other)
  Sender: FDA-Public Use
  Company Number: US-SA-2021SA123166

PATIENT
  Age: 63 Year
  Sex: Male
  Weight: 65 kg

DRUGS (9)
  1. COVID?19 VACCINE NOS. [Concomitant]
     Active Substance: COVID-19 VACCINE NOS
     Dosage: FIRST DOSE,UNREPORTED DOSE AND ROUTE OF ADMINISTRATION.
  2. GOCOVRI [Suspect]
     Active Substance: AMANTADINE
     Dosage: 137 MG, QD
     Route: 048
     Dates: start: 20210405, end: 20210415
  3. MYRBETRIQ [Concomitant]
     Active Substance: MIRABEGRON
     Dosage: UNK
  4. FLOMAX [Suspect]
     Active Substance: TAMSULOSIN HYDROCHLORIDE
     Indication: DYSKINESIA
     Dosage: UNK
     Route: 065
     Dates: start: 20210311
  5. FLOMAX [Suspect]
     Active Substance: TAMSULOSIN HYDROCHLORIDE
     Dosage: DOSE REDUCED
     Dates: start: 20210405
  6. GOCOVRI [Suspect]
     Active Substance: AMANTADINE
     Indication: DYSKINESIA
     Dosage: 137 MG
     Route: 048
     Dates: start: 20210311
  7. MIRAPEX [Concomitant]
     Active Substance: PRAMIPEXOLE DIHYDROCHLORIDE
     Indication: PARKINSON^S DISEASE
  8. GOCOVRI [Suspect]
     Active Substance: AMANTADINE
     Dosage: 274 MG, QD
     Route: 048
     Dates: start: 20210325, end: 20210404
  9. BABY ASPIRIN [Concomitant]
     Active Substance: ASPIRIN
     Dosage: UNK

REACTIONS (13)
  - Urine flow decreased [Not Recovered/Not Resolved]
  - Unevaluable event [Unknown]
  - Therapeutic product effect incomplete [Unknown]
  - Mental impairment [Recovering/Resolving]
  - Inhibitory drug interaction [Unknown]
  - Fatigue [Recovering/Resolving]
  - Cognitive disorder [Recovering/Resolving]
  - Poor quality sleep [Recovering/Resolving]
  - Sleep talking [Recovering/Resolving]
  - Abnormal dreams [Recovering/Resolving]
  - Condition aggravated [Recovering/Resolving]
  - Somnolence [Not Recovered/Not Resolved]
  - Slow speech [Recovering/Resolving]

NARRATIVE: CASE EVENT DATE: 2021
